FAERS Safety Report 5822560-6 (Version None)
Quarter: 2008Q3

REPORT INFORMATION
  Report Type: 
  Country: None (occurrence: None)
  Receive Date: 20080725
  Receipt Date: 20071226
  Transmission Date: 20090109
  Serious: No
  Sender: FDA-Public Use
  Company Number: US-AMGEN-KDL258203

PATIENT
  Sex: Male

DRUGS (5)
  1. EPOGEN [Suspect]
     Indication: DIALYSIS
     Dates: start: 20051201
  2. ENALAPRIL MALEATE [Concomitant]
  3. ATENOLOL [Concomitant]
  4. PHOSLO [Concomitant]
  5. LIPITOR [Concomitant]

REACTIONS (3)
  - ENERGY INCREASED [None]
  - FATIGUE [None]
  - INSOMNIA [None]
